FAERS Safety Report 19949626 (Version 1)
Quarter: 2021Q4

REPORT INFORMATION
  Report Type: Spontaneous
  Country: US (occurrence: US)
  Receive Date: 20211012
  Receipt Date: 20211012
  Transmission Date: 20220303
  Serious: Yes (Hospitalization)
  Sender: FDA-Public Use
  Company Number: None

PATIENT
  Age: 75 Year
  Sex: Female
  Weight: 64.9 kg

DRUGS (2)
  1. PACLITAXEL [Suspect]
     Active Substance: PACLITAXEL
     Indication: Ovarian cancer
     Dosage: ?          OTHER FREQUENCY:D1, D8, AND D15;
     Route: 042
     Dates: start: 20210909, end: 20210916
  2. LAPATINIB [Suspect]
     Active Substance: LAPATINIB
     Indication: Ovarian cancer
     Dosage: ?          OTHER FREQUENCY:BID ON D6,7,13,14;
     Route: 048
     Dates: start: 20210914, end: 20210922

REACTIONS (11)
  - Influenza like illness [None]
  - Pyrexia [None]
  - Thrombocytopenia [None]
  - Hypertension [None]
  - Acute kidney injury [None]
  - Acute respiratory failure [None]
  - Bronchiectasis [None]
  - Lung opacity [None]
  - Pneumonia [None]
  - Acute myeloid leukaemia [None]
  - Leukaemia monocytic [None]

NARRATIVE: CASE EVENT DATE: 20211004
